FAERS Safety Report 4813582-2 (Version None)
Quarter: 2005Q4

REPORT INFORMATION
  Report Type: 
  Country: None (occurrence: None)
  Receive Date: 20051028
  Receipt Date: 20050228
  Transmission Date: 20060501
  Serious: No
  Sender: FDA-Public Use
  Company Number: US-GLAXOSMITHKLINE-A0547597A

PATIENT
  Age: 27 Year
  Sex: Female

DRUGS (3)
  1. ADVAIR DISKUS 100/50 [Suspect]
     Indication: ASTHMA
     Dosage: 1BLS TWICE PER DAY
     Route: 055
  2. ALBUTEROL [Concomitant]
     Indication: ASTHMA
     Dosage: 2PUFF AS REQUIRED
     Route: 055
  3. NUVARING [Concomitant]
     Indication: CONTRACEPTION
     Route: 067

REACTIONS (2)
  - BURNING SENSATION [None]
  - PHARMACEUTICAL PRODUCT COMPLAINT [None]
